FAERS Safety Report 6915112-8 (Version None)
Quarter: 2010Q3

REPORT INFORMATION
  Report Type: 
  Country: None (occurrence: None)
  Receive Date: 20100809
  Receipt Date: 20100730
  Transmission Date: 20110219
  Serious: Yes (Hospitalization)
  Sender: FDA-Public Use
  Company Number: ES-ABBOTT-10P-144-0655795-00

PATIENT
  Sex: Female
  Weight: 57.5 kg

DRUGS (9)
  1. KALETRA [Suspect]
     Indication: HIV INFECTION
     Route: 048
     Dates: start: 20090216
  2. KALETRA [Suspect]
     Indication: LIPOATROPHY
  3. SECALIP SUPRA [Concomitant]
     Indication: PRODUCT USED FOR UNKNOWN INDICATION
  4. TRANXILIUM [Concomitant]
     Indication: PRODUCT USED FOR UNKNOWN INDICATION
  5. ATORVASTATIN [Concomitant]
     Indication: PRODUCT USED FOR UNKNOWN INDICATION
  6. DEPRAX [Concomitant]
     Indication: PRODUCT USED FOR UNKNOWN INDICATION
  7. ATARAX [Concomitant]
     Indication: PRODUCT USED FOR UNKNOWN INDICATION
  8. VENTOLIN [Concomitant]
     Indication: RESPIRATORY FAILURE
  9. ABACAVIR SULFATE AND LAMIVUDINE [Concomitant]
     Indication: PRODUCT USED FOR UNKNOWN INDICATION
     Dates: start: 20090216

REACTIONS (8)
  - ACUTE RESPIRATORY FAILURE [None]
  - BRONCHIAL HYPERREACTIVITY [None]
  - CHRONIC OBSTRUCTIVE PULMONARY DISEASE [None]
  - COMMUNITY ACQUIRED INFECTION [None]
  - HYPERCHROMIC ANAEMIA [None]
  - HYPOVENTILATION [None]
  - MICROCYTIC ANAEMIA [None]
  - RESPIRATORY TRACT INFECTION [None]
